FAERS Safety Report 4612835-0 (Version None)
Quarter: 2005Q1

REPORT INFORMATION
  Report Type: 
  Country: None (occurrence: None)
  Receive Date: 20050318
  Receipt Date: 20050307
  Transmission Date: 20050727
  Serious: Yes (Other)
  Sender: FDA-Public Use
  Company Number: JP-JNJFOC-20050301325

PATIENT
  Sex: Female

DRUGS (1)
  1. TAVANIC [Suspect]
     Indication: BRONCHITIS
     Route: 049
     Dates: start: 20050201, end: 20050201

REACTIONS (3)
  - AGEUSIA [None]
  - ANOSMIA [None]
  - DYSGEUSIA [None]
